FAERS Safety Report 16429588 (Version 2)
Quarter: 2019Q2

REPORT INFORMATION
  Report Type: Spontaneous
  Country: US (occurrence: US)
  Receive Date: 20190614
  Receipt Date: 20190619
  Transmission Date: 20190711
  Serious: Yes (Other)
  Sender: FDA-Public Use
  Company Number: US-GW PHARMA-201905USGW1481

PATIENT

DRUGS (9)
  1. VITAMIN B6 [Concomitant]
     Active Substance: PYRIDOXINE HYDROCHLORIDE
     Indication: SUPPLEMENTATION THERAPY
     Dosage: 50 MILLIGRAM, QD (25 MG BID)
     Route: 065
     Dates: start: 2014
  2. BANZEL [Concomitant]
     Active Substance: RUFINAMIDE
     Indication: EPILEPSY
     Dosage: 3200 MILLIGRAM, QD (1600 MG BID)
     Route: 065
     Dates: start: 2013
  3. EPIDIOLEX [Suspect]
     Active Substance: CANNABIDIOL
     Indication: PRODUCT USED FOR UNKNOWN INDICATION
     Dosage: 5.7 MG/KG, 300 MILLIGRAM, QD (150 MG BID)
     Route: 048
     Dates: start: 20190322, end: 20190404
  4. COLACE [Concomitant]
     Active Substance: DOCUSATE SODIUM
     Indication: CONSTIPATION
     Dosage: 100 MILLIGRAM, QD
     Route: 065
     Dates: start: 2010
  5. MIRALAX [Concomitant]
     Active Substance: POLYETHYLENE GLYCOL 3350
     Indication: CONSTIPATION
     Dosage: 17 GRAM, QD
     Route: 065
     Dates: start: 2012
  6. LEVETIRACETAM. [Concomitant]
     Active Substance: LEVETIRACETAM
     Indication: EPILEPSY
     Dosage: 3000 MILLIGRAM, QHS
     Route: 065
     Dates: start: 2010
  7. ONFI [Concomitant]
     Active Substance: CLOBAZAM
     Indication: EPILEPSY
     Dosage: 20 MILLIGRAM, BID
     Route: 065
     Dates: start: 2013
  8. EPIDIOLEX [Suspect]
     Active Substance: CANNABIDIOL
     Dosage: 10.9 MG/KG, 580 MILLIGRAM, QD (290 MG BID)
     Route: 048
     Dates: start: 20190405, end: 20190506
  9. LAMOTRIGINE. [Concomitant]
     Active Substance: LAMOTRIGINE
     Indication: EPILEPSY
     Dosage: 200 MILLIGRAM, BID
     Route: 065
     Dates: start: 2012

REACTIONS (1)
  - Hepatic enzyme increased [Recovering/Resolving]

NARRATIVE: CASE EVENT DATE: 20190506
